FAERS Safety Report 19840001 (Version 6)
Quarter: 2022Q1

REPORT INFORMATION
  Report Type: Report from Study
  Country: US (occurrence: US)
  Receive Date: 20210916
  Receipt Date: 20220202
  Transmission Date: 20220424
  Serious: No
  Sender: FDA-Public Use
  Company Number: NVSC2021US210506

PATIENT
  Sex: Female

DRUGS (3)
  1. ENTRESTO [Suspect]
     Active Substance: SACUBITRIL\VALSARTAN
     Indication: Cardiac failure
     Dosage: 1 DF, BID
     Route: 048
     Dates: start: 202105
  2. ENTRESTO [Suspect]
     Active Substance: SACUBITRIL\VALSARTAN
     Dosage: 1 DOSAGE FORM, BID
     Route: 048
  3. ENTRESTO [Suspect]
     Active Substance: SACUBITRIL\VALSARTAN
     Dosage: 1 DOSAGE FORM, BID
     Route: 048

REACTIONS (9)
  - Myalgia [Unknown]
  - Muscular weakness [Not Recovered/Not Resolved]
  - Weight fluctuation [Unknown]
  - Sinusitis [Unknown]
  - Sneezing [Unknown]
  - Cardiac disorder [Recovering/Resolving]
  - Viral infection [Recovering/Resolving]
  - Dizziness [Not Recovered/Not Resolved]
  - Cough [Unknown]
